FAERS Safety Report 6102187-1 (Version None)
Quarter: 2009Q1

REPORT INFORMATION
  Report Type: 
  Country: None (occurrence: None)
  Receive Date: 20090304
  Receipt Date: 20081104
  Transmission Date: 20090719
  Serious: Yes (Hospitalization)
  Sender: FDA-Public Use
  Company Number: GB-ASTRAZENECA-2009GB00552

PATIENT
  Age: 34 Year
  Sex: Male

DRUGS (11)
  1. MEROPENEM [Suspect]
     Route: 058
  2. OMEPRAZOLE [Suspect]
     Indication: GASTROOESOPHAGEAL REFLUX DISEASE
     Route: 048
  3. CLARITHROMYCIN [Suspect]
     Indication: PSEUDOMONAS INFECTION
     Route: 065
  4. CLARITHROMYCIN [Suspect]
     Indication: MYCOBACTERIUM ABSCESSUS INFECTION
     Route: 065
  5. COLOMYCIN [Suspect]
     Route: 042
  6. INTERFERON GAMMA [Suspect]
     Indication: MYCOBACTERIUM ABSCESSUS INFECTION
     Route: 058
  7. INTERFERON GAMMA [Suspect]
     Indication: PSEUDOMONAS INFECTION
     Route: 058
  8. MINOCYCLINE [Suspect]
     Indication: PSEUDOMONAS INFECTION
     Route: 065
  9. MINOCYCLINE [Suspect]
     Indication: MYCOBACTERIUM ABSCESSUS INFECTION
     Route: 065
  10. TOBRAMYCIN [Suspect]
     Indication: MYCOBACTERIUM ABSCESSUS INFECTION
     Route: 065
  11. TOBRAMYCIN [Suspect]
     Indication: PSEUDOMONAS INFECTION
     Route: 065

REACTIONS (9)
  - ABDOMINAL PAIN [None]
  - COLITIS [None]
  - DEHYDRATION [None]
  - DIARRHOEA [None]
  - HYPOTENSION [None]
  - NAUSEA [None]
  - PSEUDOMEMBRANOUS COLITIS [None]
  - PYREXIA [None]
  - TACHYCARDIA [None]
